FAERS Safety Report 7734290-4 (Version None)
Quarter: 2011Q3

REPORT INFORMATION
  Report Type: 
  Country: None (occurrence: None)
  Receive Date: 20110907
  Receipt Date: 20100428
  Transmission Date: 20111222
  Serious: No
  Sender: FDA-Public Use
  Company Number: US-BAYER-201021453NA

PATIENT
  Sex: Female

DRUGS (2)
  1. MIRENA [Suspect]
     Dosage: 20 ?G/D, CONT
     Route: 015
  2. HORMONES AND RELATED AGENTS [Concomitant]
     Dosage: UNK

REACTIONS (2)
  - NO ADVERSE EVENT [None]
  - GENITAL HAEMORRHAGE [None]
